FAERS Safety Report 13864545 (Version 1)
Quarter: 2017Q3

REPORT INFORMATION
  Report Type: Report from Study
  Country: US (occurrence: US)
  Receive Date: 20170814
  Receipt Date: 20170814
  Transmission Date: 20171127
  Serious: Yes (Other)
  Sender: FDA-Public Use
  Company Number: US-EMD SERONO-E2B_80078174

PATIENT
  Age: 26 Year
  Sex: Female

DRUGS (1)
  1. REBIF [Suspect]
     Active Substance: INTERFERON BETA-1A
     Indication: MULTIPLE SCLEROSIS
     Route: 058
     Dates: start: 20170609

REACTIONS (6)
  - Injection site erythema [Not Recovered/Not Resolved]
  - Migraine [Unknown]
  - Seizure [Unknown]
  - Injection site nodule [Not Recovered/Not Resolved]
  - Multiple sclerosis relapse [Unknown]
  - Head injury [Unknown]

NARRATIVE: CASE EVENT DATE: 20170804
